FAERS Safety Report 8661316 (Version 2)
Quarter: 2012Q4

REPORT INFORMATION
  Report Type: 
  Country: AT (occurrence: AT)
  Receive Date: 20120712
  Receipt Date: 20120830
  Transmission Date: 20130627
  Serious: Yes (Death, Hospitalization)
  Sender: FDA-Public Use
  Company Number: PHHY2012AT059406

PATIENT
  Age: 77 Year
  Sex: Female

DRUGS (5)
  1. ACLASTA [Suspect]
     Indication: OSTEOPOROSIS
     Dosage: 5 mg/100 ml
     Route: 042
     Dates: start: 20120604
  2. CO-RENITEC [Concomitant]
     Indication: HYPERTENSION
     Route: 048
     Dates: start: 20010721
  3. SERTRALINE [Concomitant]
     Indication: DEPRESSION
     Dosage: 100 mg, UNK
     Route: 048
     Dates: start: 20091112
  4. SIMVASTATIN [Concomitant]
     Indication: HYPERCHOLESTEROLAEMIA
     Dosage: 40 mg, UNK
     Route: 048
     Dates: start: 20120604
  5. CAL-D-VITA [Concomitant]
     Indication: MENOPAUSE
     Route: 048
     Dates: start: 20090910

REACTIONS (1)
  - Cerebrovascular accident [Fatal]
